FAERS Safety Report 7865220-2 (Version None)
Quarter: 2011Q4

REPORT INFORMATION
  Report Type: 
  Country: None (occurrence: None)
  Receive Date: 20111028
  Receipt Date: 20101102
  Transmission Date: 20120403
  Serious: No
  Sender: FDA-Public Use
  Company Number: US-GLAXOSMITHKLINE-A0890307A

PATIENT
  Age: 74 Year
  Sex: Male

DRUGS (10)
  1. SIMVASTATIN [Concomitant]
  2. FISH OIL [Concomitant]
  3. AMLODIPINE [Concomitant]
  4. MULTI-VITAMIN [Concomitant]
  5. ADVAIR DISKUS 100/50 [Suspect]
     Indication: CHRONIC OBSTRUCTIVE PULMONARY DISEASE
     Dosage: 1PUFF TWICE PER DAY
     Route: 055
     Dates: end: 20101001
  6. FUROSEMIDE [Concomitant]
  7. JANUVIA [Concomitant]
  8. GLIPIZIDE [Concomitant]
  9. ASPIRIN [Concomitant]
  10. WELCHOL [Concomitant]

REACTIONS (1)
  - LIP PAIN [None]
